FAERS Safety Report 25276896 (Version 2)
Quarter: 2025Q2

REPORT INFORMATION
  Report Type: Other
  Country: ES (occurrence: ES)
  Receive Date: 20250507
  Receipt Date: 20250507
  Transmission Date: 20250717
  Serious: Yes (Other)
  Sender: STRIDES
  Company Number: ES-TEVA-2023-ES-2887829

PATIENT
  Age: 62 Year
  Sex: Female
  Weight: 90 kg

DRUGS (48)
  1. METFORMIN [Suspect]
     Active Substance: METFORMIN HYDROCHLORIDE
     Indication: Diabetes mellitus
     Route: 065
  2. METFORMIN [Suspect]
     Active Substance: METFORMIN HYDROCHLORIDE
     Route: 065
     Dates: start: 2010
  3. METFORMIN [Suspect]
     Active Substance: METFORMIN HYDROCHLORIDE
     Route: 065
     Dates: start: 2010
  4. PRAMIPEXOLE DIHYDROCHLORIDE [Suspect]
     Active Substance: PRAMIPEXOLE DIHYDROCHLORIDE
     Indication: Parkinsonism
     Route: 065
  5. PRAMIPEXOLE DIHYDROCHLORIDE [Suspect]
     Active Substance: PRAMIPEXOLE DIHYDROCHLORIDE
     Indication: Tremor
  6. ALPRAZOLAM [Interacting]
     Active Substance: ALPRAZOLAM
     Indication: Personality disorder
     Route: 065
  7. GABAPENTIN [Interacting]
     Active Substance: GABAPENTIN
     Indication: Arthralgia
     Route: 065
     Dates: start: 2019
  8. GABAPENTIN [Interacting]
     Active Substance: GABAPENTIN
     Indication: Personality disorder
     Route: 065
  9. KETAZOLAM [Suspect]
     Active Substance: KETAZOLAM
     Indication: Hallucination
     Route: 065
     Dates: start: 2016
  10. PIMOZIDE [Suspect]
     Active Substance: PIMOZIDE
     Indication: Personality disorder
     Route: 065
  11. PIMOZIDE [Suspect]
     Active Substance: PIMOZIDE
     Route: 065
  12. LORMETAZEPAM [Suspect]
     Active Substance: LORMETAZEPAM
     Indication: Personality disorder
     Route: 065
  13. LORMETAZEPAM [Suspect]
     Active Substance: LORMETAZEPAM
     Route: 065
  14. QUETIAPINE [Interacting]
     Active Substance: QUETIAPINE
     Indication: Personality disorder
     Route: 065
  15. QUETIAPINE [Interacting]
     Active Substance: QUETIAPINE
     Route: 065
  16. VALSARTAN [Interacting]
     Active Substance: VALSARTAN
     Indication: Hypertension
     Route: 065
     Dates: start: 2014
  17. VALSARTAN [Interacting]
     Active Substance: VALSARTAN
     Route: 065
  18. MANIDIPINE [Interacting]
     Active Substance: MANIDIPINE
     Indication: Hypertension
     Route: 065
     Dates: start: 2014
  19. MANIDIPINE [Interacting]
     Active Substance: MANIDIPINE
     Route: 065
     Dates: start: 2014
  20. FUROSEMIDE [Interacting]
     Active Substance: FUROSEMIDE
     Indication: Hypertension
     Route: 065
     Dates: start: 2014
  21. FUROSEMIDE [Interacting]
     Active Substance: FUROSEMIDE
     Route: 065
  22. FUROSEMIDE [Interacting]
     Active Substance: FUROSEMIDE
     Route: 065
  23. EMPAGLIFLOZIN [Concomitant]
     Active Substance: EMPAGLIFLOZIN
     Indication: Hypertension
     Route: 065
  24. EMPAGLIFLOZIN [Concomitant]
     Active Substance: EMPAGLIFLOZIN
     Indication: Diabetes mellitus
     Route: 065
     Dates: start: 2010
  25. LIRAGLUTIDE [Concomitant]
     Active Substance: LIRAGLUTIDE
     Indication: Hypertension
     Route: 065
  26. LIRAGLUTIDE [Concomitant]
     Active Substance: LIRAGLUTIDE
     Indication: Diabetes mellitus
  27. ATORVASTATIN [Concomitant]
     Active Substance: ATORVASTATIN
     Indication: Hypercholesterolaemia
     Route: 065
     Dates: start: 2015
  28. AMISULPRIDE [Concomitant]
     Active Substance: AMISULPRIDE
     Indication: Personality disorder
     Route: 065
  29. AMISULPRIDE [Concomitant]
     Active Substance: AMISULPRIDE
     Route: 065
  30. VORTIOXETINE [Concomitant]
     Active Substance: VORTIOXETINE
     Indication: Personality disorder
     Route: 065
  31. CLOPIDOGREL [Concomitant]
     Active Substance: CLOPIDOGREL BISULFATE
     Indication: Prophylaxis
     Route: 065
     Dates: start: 2018
  32. CLOPIDOGREL [Concomitant]
     Active Substance: CLOPIDOGREL BISULFATE
     Indication: Cerebrovascular accident
  33. PANTOPRAZOLE [Concomitant]
     Active Substance: PANTOPRAZOLE
     Indication: Gastrooesophageal reflux disease
     Route: 065
     Dates: start: 2016
  34. PANTOPRAZOLE [Concomitant]
     Active Substance: PANTOPRAZOLE
  35. CALCIFEDIOL [Concomitant]
     Active Substance: CALCIFEDIOL
     Indication: Vitamin D deficiency
     Route: 065
  36. CALCIFEDIOL [Concomitant]
     Active Substance: CALCIFEDIOL
     Route: 065
     Dates: start: 2021
  37. TRAMADOL [Concomitant]
     Active Substance: TRAMADOL
     Indication: Arthralgia
     Route: 065
  38. TRAMADOL [Concomitant]
     Active Substance: TRAMADOL
     Route: 065
  39. ACETAMINOPHEN [Concomitant]
     Active Substance: ACETAMINOPHEN
     Indication: Arthralgia
     Route: 065
     Dates: start: 2019
  40. ACETAMINOPHEN [Concomitant]
     Active Substance: ACETAMINOPHEN
     Route: 065
     Dates: start: 2019
  41. ALBUTEROL [Concomitant]
     Active Substance: ALBUTEROL
     Indication: Chronic obstructive pulmonary disease
     Route: 065
     Dates: start: 2016
  42. INDACATEROL [Concomitant]
     Active Substance: INDACATEROL
     Indication: Chronic obstructive pulmonary disease
     Route: 065
     Dates: start: 2016
  43. Indacaterol maleate and glycopyrronium bromide [Concomitant]
     Indication: Chronic obstructive pulmonary disease
     Route: 065
  44. Indacaterol maleate and glycopyrronium bromide [Concomitant]
     Route: 065
     Dates: start: 2016
  45. EMPAGLIFLOZIN\METFORMIN HYDROCHLORIDE [Concomitant]
     Active Substance: EMPAGLIFLOZIN\METFORMIN HYDROCHLORIDE
     Indication: Diabetes mellitus
     Route: 065
     Dates: start: 2010
  46. GLYCOPYRROLATE\INDACATEROL MALEATE [Concomitant]
     Active Substance: GLYCOPYRROLATE\INDACATEROL MALEATE
     Indication: Chronic obstructive pulmonary disease
     Route: 065
     Dates: start: 2018
  47. ACETAMINOPHEN\TRAMADOL [Concomitant]
     Active Substance: ACETAMINOPHEN\TRAMADOL
     Indication: Arthralgia
     Route: 065
     Dates: start: 2019
  48. TRAMADOL [Concomitant]
     Active Substance: TRAMADOL
     Indication: Arthralgia
     Route: 065
     Dates: start: 2019

REACTIONS (9)
  - Parkinsonism [Recovered/Resolved]
  - Hallucination [Recovered/Resolved]
  - Hypoglycaemia [Recovered/Resolved]
  - Hypotension [Recovered/Resolved]
  - Tachycardia [Recovered/Resolved]
  - Hyperhidrosis [Recovered/Resolved]
  - Somnolence [Recovered/Resolved]
  - Drug interaction [Recovered/Resolved]
  - Off label use [Unknown]
